FAERS Safety Report 8078633-3 (Version None)
Quarter: 2012Q1

REPORT INFORMATION
  Report Type: 
  Country: None (occurrence: None)
  Receive Date: 20120124
  Receipt Date: 20120112
  Transmission Date: 20120608
  Serious: Yes (Hospitalization)
  Sender: FDA-Public Use
  Company Number: 2012MA000870

PATIENT
  Age: 65 Year
  Sex: Male

DRUGS (10)
  1. BRICANYL [Suspect]
  2. OMEPRAZOLE [Concomitant]
  3. PULMICORT [Concomitant]
  4. GLIBENKLAMID RECIP [Concomitant]
  5. METFORMIN HCL [Concomitant]
  6. PRIMPERAN TAB [Concomitant]
  7. METOPROLOL SUCCINATE [Concomitant]
  8. CISPLATIN [Suspect]
     Indication: NEOPLASM MALIGNANT
     Dosage: 170 MG; IV
     Route: 042
     Dates: start: 20111102, end: 20111123
  9. ASPIRIN [Concomitant]
  10. VINORELBINE [Suspect]
     Indication: NEOPLASM MALIGNANT
     Dosage: 50 MG; IV
     Route: 042
     Dates: start: 20111102, end: 20111123

REACTIONS (7)
  - RENAL FAILURE ACUTE [None]
  - WHITE BLOOD CELL COUNT DECREASED [None]
  - DIZZINESS [None]
  - NEPHROPATHY TOXIC [None]
  - FATIGUE [None]
  - ORAL CANDIDIASIS [None]
  - RENAL TUBULAR DISORDER [None]
